FAERS Safety Report 7246459-6 (Version None)
Quarter: 2011Q1

REPORT INFORMATION
  Report Type: 
  Country: None (occurrence: None)
  Receive Date: 20110126
  Receipt Date: 20110104
  Transmission Date: 20110831
  Serious: No
  Sender: FDA-Public Use
  Company Number: US-MYLANLABS-2010S1020994

PATIENT
  Age: 52 Year
  Sex: Male

DRUGS (8)
  1. ROZEREM [Concomitant]
     Route: 048
  2. TAMSULOSIN HCL [Suspect]
     Indication: PROSTATOMEGALY
     Route: 048
     Dates: start: 20101001, end: 20101109
  3. M.V.I. [Concomitant]
     Route: 048
  4. AVODART [Concomitant]
     Route: 048
  5. NEXIUM [Concomitant]
     Route: 048
     Dates: start: 20000101
  6. RHINOCORT [Concomitant]
     Route: 045
  7. MELOXICAM [Concomitant]
     Indication: TENDONITIS
     Route: 048
     Dates: start: 20101101
  8. TAMSULOSIN HCL [Suspect]
     Route: 048
     Dates: start: 20101111

REACTIONS (2)
  - REACTION TO DRUG EXCIPIENTS [None]
  - RASH GENERALISED [None]
